FAERS Safety Report 7441538-2 (Version None)
Quarter: 2011Q2

REPORT INFORMATION
  Report Type: 
  Country: None (occurrence: None)
  Receive Date: 20110428
  Receipt Date: 20110414
  Transmission Date: 20111010
  Serious: Yes (Other)
  Sender: FDA-Public Use
  Company Number: FR-JNJFOC-20110100517

PATIENT
  Sex: Female
  Weight: 89 kg

DRUGS (11)
  1. REMICADE [Suspect]
     Indication: CROHN'S DISEASE
     Route: 042
  2. CREON [Concomitant]
     Indication: PANCREATIC INSUFFICIENCY
  3. CORTANCYL [Concomitant]
     Indication: CROHN'S DISEASE
  4. AZATHIOPRINE [Suspect]
     Indication: CROHN'S DISEASE
     Route: 048
  5. AZATHIOPRINE [Suspect]
     Indication: SPONDYLITIS
     Route: 048
  6. XANAX [Concomitant]
     Indication: ANXIETY
  7. XANAX [Concomitant]
     Indication: DEPRESSION
  8. DIAMICRON [Concomitant]
     Indication: TYPE 2 DIABETES MELLITUS
  9. REMICADE [Suspect]
     Indication: SPONDYLITIS
     Route: 042
  10. PREDNISONE [Concomitant]
  11. EFFEXOR [Concomitant]

REACTIONS (1)
  - HODGKIN'S DISEASE [None]
